FAERS Safety Report 5071578-2 (Version None)
Quarter: 2006Q3

REPORT INFORMATION
  Report Type: 
  Country: None (occurrence: None)
  Receive Date: 20060803
  Receipt Date: 20060803
  Transmission Date: 20061208
  Serious: Yes (Life-Threatening)
  Sender: FDA-Public Use
  Company Number: None

PATIENT
  Sex: Male
  Weight: 61 kg

DRUGS (2)
  1. PEGASPARGASE -ONCASPAR- 750 I.U./ML ENZON [Suspect]
     Indication: ACUTE LYMPHOCYTIC LEUKAEMIA RECURRENT
     Dosage: 2500 UNITS/M2 - 4075 ONCE IM
     Route: 030
     Dates: start: 20060516, end: 20060802
  2. PEGASPARGASE -ONCASPAR- 750 I.U./ML ENZON [Suspect]

REACTIONS (1)
  - URTICARIA [None]
